FAERS Safety Report 22344042 (Version 1)
Quarter: 2023Q2

REPORT INFORMATION
  Report Type: Report from Study
  Country: US (occurrence: US)
  Receive Date: 20230519
  Receipt Date: 20230519
  Transmission Date: 20230722
  Serious: Yes (Hospitalization, Other)
  Sender: FDA-Public Use
  Company Number: US-GILEAD-2023-0629046

PATIENT
  Sex: Female

DRUGS (24)
  1. AZTREONAM LYSINE [Suspect]
     Active Substance: AZTREONAM LYSINE
     Indication: Product used for unknown indication
     Dosage: 75 MG, TID,ALTERNATE 28 DAYS ON 28 DAYS OFF
     Route: 055
  2. FOLIC ACID [Concomitant]
     Active Substance: FOLIC ACID
  3. ZYRTEC [Concomitant]
     Active Substance: CETIRIZINE HYDROCHLORIDE
  4. PREDNISONE [Concomitant]
     Active Substance: PREDNISONE
  5. FLONASE [Concomitant]
     Active Substance: FLUTICASONE PROPIONATE
  6. TRESIBA [Concomitant]
     Active Substance: INSULIN DEGLUDEC
  7. NEXIUM I.V. [Concomitant]
     Active Substance: ESOMEPRAZOLE SODIUM
  8. KLOR-CON M10 [Concomitant]
     Active Substance: POTASSIUM CHLORIDE
  9. BYSTOLIC [Concomitant]
     Active Substance: NEBIVOLOL HYDROCHLORIDE
  10. STIOLTO RESPIMAT [Concomitant]
     Active Substance: OLODATEROL HYDROCHLORIDE\TIOTROPIUM BROMIDE MONOHYDRATE
  11. NYSTATIN [Concomitant]
     Active Substance: NYSTATIN
  12. CYCLOBENZAPRINE HYDROCHLORIDE [Concomitant]
     Active Substance: CYCLOBENZAPRINE HYDROCHLORIDE
  13. BROVANA [Concomitant]
     Active Substance: ARFORMOTEROL TARTRATE
  14. COLACE [Concomitant]
     Active Substance: DOCUSATE SODIUM
  15. VENLAFAXINE HYDROCHLORIDE [Concomitant]
     Active Substance: VENLAFAXINE HYDROCHLORIDE
  16. CREON [Concomitant]
     Active Substance: PANCRELIPASE AMYLASE\PANCRELIPASE LIPASE\PANCRELIPASE PROTEASE
  17. BUDESONIDE [Concomitant]
     Active Substance: BUDESONIDE
  18. FIASP [Concomitant]
     Active Substance: INSULIN ASPART
  19. TARCEVA [Concomitant]
     Active Substance: ERLOTINIB HYDROCHLORIDE
  20. PULMOZYME [Concomitant]
     Active Substance: DORNASE ALFA
  21. MAGNESIUM CITRATE [Concomitant]
     Active Substance: MAGNESIUM CITRATE
  22. PROAIR HFA [Concomitant]
     Active Substance: ALBUTEROL SULFATE
  23. MUCINEX [Concomitant]
     Active Substance: GUAIFENESIN
  24. GENTAMICIN SULFATE [Concomitant]
     Active Substance: GENTAMICIN SULFATE

REACTIONS (1)
  - Cystic fibrosis [Unknown]
